FAERS Safety Report 23825634 (Version 3)
Quarter: 2024Q2

REPORT INFORMATION
  Report Type: Spontaneous
  Country: EE (occurrence: EE)
  Receive Date: 20240507
  Receipt Date: 20240522
  Transmission Date: 20240715
  Serious: Yes (Other)
  Sender: FDA-Public Use
  Company Number: EE-MLMSERVICE-20240429-PI041896-00249-1

PATIENT
  Age: 69 Year
  Sex: Male

DRUGS (6)
  1. OXALIPLATIN [Suspect]
     Active Substance: OXALIPLATIN
     Indication: Colon cancer
     Dosage: 130 MG/M2 INTRAVENOUS INFUSION FOR 2-3 HOURS (SOLUTION WITH 5% GLUCOSE)
     Route: 042
  2. OXALIPLATIN [Suspect]
     Active Substance: OXALIPLATIN
     Dosage: 100 MG/M2
     Route: 042
  3. OXALIPLATIN [Suspect]
     Active Substance: OXALIPLATIN
     Dosage: 80 MG/M2
     Route: 042
  4. CAPECITABINE [Suspect]
     Active Substance: CAPECITABINE
     Indication: Colon cancer
     Dosage: 2 GRAM/DAY AFTER FIRST CT CYCLE
     Route: 048
  5. CAPECITABINE [Suspect]
     Active Substance: CAPECITABINE
     Dosage: 3 GRAM/DAY IN FIRST CT CYCLE
     Route: 048
  6. DEXTROSE [Concomitant]
     Active Substance: DEXTROSE\DEXTROSE MONOHYDRATE
     Dosage: INTRAVENOUS INFUSION OF OXALIPLATIN FOR 2-3 HOURS (SOLUTION WITH 5% GLUCOSE)
     Route: 042

REACTIONS (11)
  - Neutropenia [Recovered/Resolved]
  - Thrombocytopenia [Recovered/Resolved]
  - Neuropathy peripheral [Not Recovered/Not Resolved]
  - Hypoaesthesia [Not Recovered/Not Resolved]
  - Paraesthesia [Not Recovered/Not Resolved]
  - Bronchitis [Unknown]
  - Nausea [Recovered/Resolved]
  - Reflux laryngitis [Recovered/Resolved]
  - Anaemia [Recovered/Resolved]
  - Sinusitis [Unknown]
  - Diarrhoea [Recovered/Resolved]
